FAERS Safety Report 5338204-6 (Version None)
Quarter: 2007Q2

REPORT INFORMATION
  Report Type: 
  Country: None (occurrence: None)
  Receive Date: 20070327
  Receipt Date: 20070110
  Transmission Date: 20071010
  Serious: No
  Sender: FDA-Public Use
  Company Number: 233655

PATIENT
  Age: 33 Year
  Sex: Female

DRUGS (2)
  1. AVASTIN [Suspect]
     Indication: BREAST CANCER METASTATIC
     Dosage: 600 MG, Q2W, INTRAVENOUS
     Route: 042
     Dates: start: 20060201
  2. TAXOTERE [Concomitant]

REACTIONS (1)
  - PROTEIN URINE [None]
